FAERS Safety Report 13247909 (Version 1)
Quarter: 2017Q1

REPORT INFORMATION
  Report Type: Spontaneous
  Country: US (occurrence: US)
  Receive Date: 20170217
  Receipt Date: 20170217
  Transmission Date: 20170428
  Serious: No
  Sender: FDA-Public Use
  Company Number: US-GLAXOSMITHKLINE-US2017022044

PATIENT
  Age: 80 Year
  Sex: Female

DRUGS (1)
  1. NICODERM CQ [Suspect]
     Active Substance: NICOTINE
     Indication: SMOKING CESSATION THERAPY
     Dosage: 21 MG, UNK
     Dates: end: 20170207

REACTIONS (5)
  - Application site rash [Not Recovered/Not Resolved]
  - Application site urticaria [Not Recovered/Not Resolved]
  - Application site pruritus [Not Recovered/Not Resolved]
  - Application site reaction [Not Recovered/Not Resolved]
  - Application site erythema [Not Recovered/Not Resolved]
